FAERS Safety Report 9579782 (Version 1)
Quarter: 2013Q4

REPORT INFORMATION
  Report Type: Spontaneous
  Country: US (occurrence: US)
  Receive Date: 20131002
  Receipt Date: 20131002
  Transmission Date: 20140711
  Serious: No
  Sender: FDA-Public Use
  Company Number: US-BIOGENIDEC-2013BI093578

PATIENT
  Sex: Female

DRUGS (1)
  1. TYSABRI [Suspect]
     Indication: MULTIPLE SCLEROSIS
     Route: 042
     Dates: start: 20071023, end: 201305

REACTIONS (5)
  - Hemiparesis [Not Recovered/Not Resolved]
  - Demyelination [Unknown]
  - Motor dysfunction [Unknown]
  - Communication disorder [Unknown]
  - Asthenia [Not Recovered/Not Resolved]
